FAERS Safety Report 23546040 (Version 2)
Quarter: 2024Q1

REPORT INFORMATION
  Report Type: Report from Study
  Country: IT (occurrence: IT)
  Receive Date: 20240220
  Receipt Date: 20240222
  Transmission Date: 20240410
  Serious: Yes (Hospitalization)
  Sender: FDA-Public Use
  Company Number: IT-AKCEA THERAPEUTICS, INC.-2024IS001430

PATIENT

DRUGS (2)
  1. TEGSEDI [Suspect]
     Active Substance: INOTERSEN SODIUM
     Indication: Hereditary neuropathic amyloidosis
     Dosage: UNK UNK, QW
     Route: 065
  2. VITAMIN A [Concomitant]
     Active Substance: VITAMIN A
     Indication: Product used for unknown indication
     Dosage: MULTICENTRUM, 1 TABLET DAILY
     Route: 065

REACTIONS (2)
  - Hernia repair [Unknown]
  - Fall [Unknown]

NARRATIVE: CASE EVENT DATE: 20240206
